FAERS Safety Report 7447153-9 (Version None)
Quarter: 2011Q2

REPORT INFORMATION
  Report Type: 
  Country: None (occurrence: None)
  Receive Date: 20110429
  Receipt Date: 20101202
  Transmission Date: 20111010
  Serious: Yes (Hospitalization)
  Sender: FDA-Public Use
  Company Number: US-ASTRAZENECA-2010SE57278

PATIENT
  Sex: Female
  Weight: 56.7 kg

DRUGS (2)
  1. NEXIUM [Suspect]
     Dosage: DAILY
     Route: 048
     Dates: start: 20060101
  2. HEART MEDICATION [Concomitant]
     Indication: CARDIAC DISORDER
     Dosage: DAILY
     Route: 048

REACTIONS (3)
  - UPPER LIMB FRACTURE [None]
  - IMPAIRED HEALING [None]
  - SKIN CHAPPED [None]
